FAERS Safety Report 20951995 (Version 1)
Quarter: 2022Q2

REPORT INFORMATION
  Report Type: Spontaneous
  Country: US (occurrence: None)
  Receive Date: 20220611
  Receipt Date: 20220611
  Transmission Date: 20220721
  Serious: Yes (Other)
  Sender: FDA-Public Use
  Company Number: None

PATIENT
  Age: 37 Year
  Sex: Female

DRUGS (1)
  1. TRULICITY [Suspect]
     Active Substance: DULAGLUTIDE

REACTIONS (6)
  - Abdominal pain upper [None]
  - Eructation [None]
  - Diarrhoea [None]
  - Nausea [None]
  - Pain [None]
  - Insomnia [None]

NARRATIVE: CASE EVENT DATE: 20220502
